FAERS Safety Report 25691266 (Version 1)
Quarter: 2025Q3

REPORT INFORMATION
  Report Type: Spontaneous
  Country: EU (occurrence: EU)
  Receive Date: 20250818
  Receipt Date: 20250818
  Transmission Date: 20251021
  Serious: Yes (Other)
  Sender: NOVARTIS
  Company Number: None

PATIENT
  Age: 38 Year
  Sex: Female

DRUGS (11)
  1. CYCLOSPORINE [Interacting]
     Active Substance: CYCLOSPORINE
     Indication: PASH syndrome
     Dosage: 250 MG, QD (150 MG IN THE MORNING AND 100 MG IN THE EVENING/2.5 MG/KG OF BODY WEIGHT)
     Route: 048
  2. RIFAMPIN [Interacting]
     Active Substance: RIFAMPIN
     Indication: Hidradenitis
     Dosage: 300 MG, Q12H
     Route: 065
  3. ADAPALENE AND BENZOYL PEROXIDE [Concomitant]
     Active Substance: ADAPALENE\BENZOYL PEROXIDE
     Indication: Acne
     Route: 065
  4. CEFUROXIME [Concomitant]
     Active Substance: CEFUROXIME
     Indication: PASH syndrome
     Dosage: 1.5 G, Q12H
     Route: 042
  5. CLINDAMYCIN [Concomitant]
     Active Substance: CLINDAMYCIN
     Indication: Hidradenitis
     Route: 065
  6. DEXAMETHASONE [Concomitant]
     Active Substance: DEXAMETHASONE
     Indication: PASH syndrome
     Dosage: 4 MG, Q12H
     Route: 042
  7. ENOXAPARIN [Concomitant]
     Active Substance: ENOXAPARIN
     Indication: Product used for unknown indication
     Dosage: 60 MG, QD
     Route: 058
  8. MAGNESIUM [Concomitant]
     Active Substance: MAGNESIUM
     Indication: Mineral supplementation
     Route: 065
  9. METFORMIN [Concomitant]
     Active Substance: METFORMIN HYDROCHLORIDE
     Indication: PASH syndrome
     Dosage: 750 MG, QD (EVENING)
     Route: 065
  10. METFORMIN [Concomitant]
     Active Substance: METFORMIN HYDROCHLORIDE
     Dosage: 850 MG, QD
     Route: 065
  11. METHYLPREDNISOLONE [Concomitant]
     Active Substance: METHYLPREDNISOLONE
     Indication: Pyoderma gangrenosum
     Dosage: 16 MG, QD
     Route: 048

REACTIONS (3)
  - Drug interaction [Unknown]
  - Immunosuppressant drug level decreased [Unknown]
  - Therapeutic product effect decreased [Unknown]
